FAERS Safety Report 4430512-6 (Version None)
Quarter: 2004Q3

REPORT INFORMATION
  Report Type: 
  Country: None (occurrence: None)
  Receive Date: 20040721
  Receipt Date: 20030728
  Transmission Date: 20050211
  Serious: Yes (Hospitalization)
  Sender: FDA-Public Use
  Company Number: OMPQ-PR-0307S-0524(0)

PATIENT
  Age: 41 Year
  Sex: Male
  Weight: 88.4514 kg

DRUGS (1)
  1. OMNIPAQUE 140 [Suspect]
     Dosage: SINGLE DOSE, I.T.
     Dates: start: 20030721, end: 20030721

REACTIONS (5)
  - BACK PAIN [None]
  - HEADACHE [None]
  - NAUSEA [None]
  - NECK PAIN [None]
  - VOMITING [None]
